FAERS Safety Report 6375748-2 (Version None)
Quarter: 2009Q3

REPORT INFORMATION
  Report Type: 
  Country: None (occurrence: None)
  Receive Date: 20090921
  Receipt Date: 20070516
  Transmission Date: 20100115
  Serious: Yes (Other)
  Sender: FDA-Public Use
  Company Number: A03200703233

PATIENT
  Age: 58 Year
  Sex: Female
  Weight: 90.7194 kg

DRUGS (7)
  1. AMBIEN CR [Suspect]
     Indication: POST CONCUSSION SYNDROME
     Dosage: 12.5 MG HS - ORAL
     Route: 048
     Dates: start: 20070101, end: 20070101
  2. AMBIEN CR [Suspect]
     Indication: SLEEP DISORDER
     Dosage: 12.5 MG HS - ORAL
     Route: 048
     Dates: start: 20070101, end: 20070101
  3. METFORMIN [Concomitant]
  4. GLIPIZIDE [Concomitant]
  5. LISINOPRIL [Concomitant]
  6. DULOXETINE HYDROCHLORIDE [Concomitant]
  7. FLUTICASONE + SALMETEROL [Concomitant]

REACTIONS (8)
  - ABNORMAL SLEEP-RELATED EVENT [None]
  - AMNESIA [None]
  - DRUG EFFECT DECREASED [None]
  - FALL [None]
  - INTERVERTEBRAL DISC PROTRUSION [None]
  - NIGHTMARE [None]
  - SLEEP-RELATED EATING DISORDER [None]
  - SOMNAMBULISM [None]
